FAERS Safety Report 7264481-0 (Version None)
Quarter: 2011Q1

REPORT INFORMATION
  Report Type: 
  Country: None (occurrence: None)
  Receive Date: 20110131
  Receipt Date: 20110120
  Transmission Date: 20110831
  Serious: No
  Sender: FDA-Public Use
  Company Number: US-PFIZER INC-2010164179

PATIENT
  Sex: Female
  Weight: 63.5 kg

DRUGS (1)
  1. LYRICA [Suspect]
     Indication: FIBROMYALGIA
     Dosage: 100 MG, 2X/DAY
     Route: 048
     Dates: start: 20100601, end: 20101203

REACTIONS (2)
  - WEIGHT INCREASED [None]
  - ARTHRALGIA [None]
